FAERS Safety Report 5596931-X (Version None)
Quarter: 2007Q4

REPORT INFORMATION
  Report Type: 
  Country: None (occurrence: None)
  Receive Date: 20071220
  Receipt Date: 20070619
  Transmission Date: 20080405
  Serious: Yes (Other)
  Sender: FDA-Public Use
  Company Number: A03200703318

PATIENT
  Age: 39 Year
  Sex: Female
  Weight: 61.2356 kg

DRUGS (1)
  1. AMBIEN [Suspect]
     Indication: INSOMNIA
     Dosage: 12.5 MG HS-ORAL
     Route: 048
     Dates: start: 20070523, end: 20070524

REACTIONS (4)
  - ABNORMAL DREAMS [None]
  - HALLUCINATION [None]
  - INSOMNIA [None]
  - TREMOR [None]
